FAERS Safety Report 10551078 (Version 2)
Quarter: 2014Q4

REPORT INFORMATION
  Report Type: Spontaneous
  Country: US (occurrence: US)
  Receive Date: 20141029
  Receipt Date: 20141209
  Transmission Date: 20150529
  Serious: Yes (Hospitalization, Other)
  Sender: FDA-Public Use
  Company Number: US-BEH-2014045785

PATIENT
  Age: 57 Year
  Sex: Female
  Weight: 90 kg

DRUGS (30)
  1. VITAMIN D [Concomitant]
     Active Substance: CHOLECALCIFEROL
  2. HYDROCHLOROTHIAZIDE. [Concomitant]
     Active Substance: HYDROCHLOROTHIAZIDE
  3. NOVOLOG [Concomitant]
     Active Substance: INSULIN ASPART
  4. SODIUM CHLORIDE. [Concomitant]
     Active Substance: SODIUM CHLORIDE
  5. TACROLIMUS. [Concomitant]
     Active Substance: TACROLIMUS
  6. DURAGESIC [Concomitant]
     Active Substance: FENTANYL
  7. LEVETIRACETAM. [Concomitant]
     Active Substance: LEVETIRACETAM
  8. MEPRON [Concomitant]
     Active Substance: ATOVAQUONE
  9. ZEMAIRA [Suspect]
     Active Substance: .ALPHA.1-PROTEINASE INHIBITOR HUMAN
     Indication: ALPHA-1 ANTI-TRYPSIN DEFICIENCY
     Route: 042
     Dates: start: 20141015, end: 20141015
  10. ALL OTHER THERAPEUTIC PRODUCTS [Concomitant]
     Active Substance: UNSPECIFIED INGREDIENT
  11. MAGNESIUM OXIDE. [Concomitant]
     Active Substance: MAGNESIUM OXIDE
  12. TOPAMAX [Concomitant]
     Active Substance: TOPIRAMATE
  13. SYNTHROID [Concomitant]
     Active Substance: LEVOTHYROXINE SODIUM
  14. CELLCEPT [Concomitant]
     Active Substance: MYCOPHENOLATE MOFETIL\MYCOPHENOLATE MOFETIL HYDROCHLORIDE
  15. PREDNISONE. [Concomitant]
     Active Substance: PREDNISONE
  16. LYRICA [Concomitant]
     Active Substance: PREGABALIN
  17. KEFLEX [Concomitant]
     Active Substance: CEPHALEXIN
  18. LOSARTAN POTASSIUM. [Concomitant]
     Active Substance: LOSARTAN POTASSIUM
  19. CIPRO [Concomitant]
     Active Substance: CIPROFLOXACIN HYDROCHLORIDE
  20. VALACYCLOVIR [Concomitant]
     Active Substance: VALACYCLOVIR HYDROCHLORIDE
  21. DILTIAZEM [Concomitant]
     Active Substance: DILTIAZEM
  22. DIPHENHYDRAMINE [Concomitant]
     Active Substance: DIPHENHYDRAMINE
  23. EPIPEN [Concomitant]
     Active Substance: EPINEPHRINE
  24. SEROQUEL [Concomitant]
     Active Substance: QUETIAPINE FUMARATE
  25. LMX [Concomitant]
     Active Substance: LIDOCAINE
  26. KLONOPIN [Concomitant]
     Active Substance: CLONAZEPAM
  27. ZOLOFT [Concomitant]
     Active Substance: SERTRALINE HYDROCHLORIDE
  28. LANSOPRAZOLE. [Concomitant]
     Active Substance: LANSOPRAZOLE
  29. DOCUSATE [Concomitant]
     Active Substance: DOCUSATE
  30. NYSTATIN. [Concomitant]
     Active Substance: NYSTATIN

REACTIONS (4)
  - Diarrhoea [Unknown]
  - Lethargy [Unknown]
  - Thirst [Unknown]
  - Tremor [Unknown]

NARRATIVE: CASE EVENT DATE: 20141015
